FAERS Safety Report 20051779 (Version 1)
Quarter: 2021Q4

REPORT INFORMATION
  Report Type: Spontaneous
  Country: US (occurrence: US)
  Receive Date: 20211110
  Receipt Date: 20211110
  Transmission Date: 20220303
  Serious: No
  Sender: FDA-Public Use
  Company Number: US-CELGENE-USA-20211100430

PATIENT
  Sex: Female

DRUGS (1)
  1. POMALYST [Suspect]
     Active Substance: POMALIDOMIDE
     Indication: Plasma cell myeloma
     Dosage: 4MILLIGRAM
     Route: 048
     Dates: start: 202106

REACTIONS (2)
  - Rash [Unknown]
  - Food allergy [Unknown]

NARRATIVE: CASE EVENT DATE: 20210101
